FAERS Safety Report 16569999 (Version 3)
Quarter: 2020Q2

REPORT INFORMATION
  Report Type: Spontaneous
  Country: ES (occurrence: ES)
  Receive Date: 20190715
  Receipt Date: 20200409
  Transmission Date: 20200713
  Serious: Yes (Other)
  Sender: FDA-Public Use
  Company Number: ES-TEVA-2019-ES-1076741

PATIENT
  Age: 92 Year
  Sex: Female

DRUGS (3)
  1. PARACETAMOL (12A) [Suspect]
     Active Substance: ACETAMINOPHEN
     Route: 065
     Dates: start: 20180524
  2. DICLOFENACO (745A) [Suspect]
     Active Substance: DICLOFENAC
     Route: 065
     Dates: start: 20190411, end: 20190501
  3. TRAMADOL (2389A) [Suspect]
     Active Substance: TRAMADOL
     Route: 048
     Dates: start: 20190524

REACTIONS (1)
  - Renal failure [Not Recovered/Not Resolved]

NARRATIVE: CASE EVENT DATE: 20190527
